FAERS Safety Report 21105382 (Version 9)
Quarter: 2024Q4

REPORT INFORMATION
  Report Type: Spontaneous
  Country: US (occurrence: US)
  Receive Date: 20220720
  Receipt Date: 20241120
  Transmission Date: 20250115
  Serious: Yes (Other)
  Sender: PFIZER
  Company Number: US-PFIZER INC-PV202200001506

PATIENT
  Age: 76 Year
  Sex: Female

DRUGS (4)
  1. IBRANCE [Suspect]
     Active Substance: PALBOCICLIB
     Indication: Breast cancer metastatic
     Dosage: (75 MG 3X7 UD (UNIT DOSE) TAB 21)
  2. IBRANCE [Suspect]
     Active Substance: PALBOCICLIB
     Dosage: 125 MG
  3. IBRANCE [Suspect]
     Active Substance: PALBOCICLIB
     Dosage: 75 MG, CYCLIC (DAILY FOR 2 WEEKS, THEN 2 WEEKS REST. TAKE WITH FOOD. SWALLOW WHOLE)
     Route: 048
     Dates: start: 20230912
  4. LETROZOLE [Concomitant]
     Active Substance: LETROZOLE
     Indication: Breast cancer metastatic
     Dosage: UNK

REACTIONS (8)
  - Brain neoplasm malignant [Unknown]
  - Second primary malignancy [Unknown]
  - Type 2 diabetes mellitus [Unknown]
  - Neoplasm progression [Unknown]
  - Infection susceptibility increased [Unknown]
  - Weight decreased [Unknown]
  - Constipation [Unknown]
  - Off label use [Unknown]

NARRATIVE: CASE EVENT DATE: 20210101
